FAERS Safety Report 4486698-0 (Version None)
Quarter: 2004Q4

REPORT INFORMATION
  Report Type: 
  Country: None (occurrence: None)
  Receive Date: 20041021
  Receipt Date: 20041011
  Transmission Date: 20050328
  Serious: Yes (Other)
  Sender: FDA-Public Use
  Company Number: 2004238428US

PATIENT
  Age: 32 Year
  Sex: Female
  Weight: 97.5 kg

DRUGS (4)
  1. CELEBREX [Suspect]
     Indication: ARTHRALGIA
     Dosage: QD, ORAL
     Route: 048
     Dates: start: 20010101, end: 20040520
  2. ZOLOFT [Concomitant]
  3. NEURONTIN [Concomitant]
  4. TRILEPTAL [Concomitant]

REACTIONS (4)
  - ARTHRITIS [None]
  - LIGAMENT INJURY [None]
  - PARAESTHESIA [None]
  - SPINAL DISORDER [None]
